FAERS Safety Report 7860046-8 (Version None)
Quarter: 2011Q4

REPORT INFORMATION
  Report Type: 
  Country: None (occurrence: None)
  Receive Date: 20111025
  Receipt Date: 20111019
  Transmission Date: 20120403
  Serious: Yes (Death, Life-Threatening)
  Sender: FDA-Public Use
  Company Number: 2006SP008895

PATIENT
  Age: 83 Year
  Sex: Male
  Weight: 41 kg

DRUGS (13)
  1. CEFOPERAZONE SODIUM [Concomitant]
  2. PREDNISOLONE [Concomitant]
  3. CEFOZOPRAN HYDROCHLORIDE [Concomitant]
  4. FAMOTIDINE [Concomitant]
  5. CARBOHYDRATES/MINERALS/VITAMINS, [Concomitant]
  6. OMEPRAZOLE [Concomitant]
  7. ELASPOL (SIVELESTAT SODIUM HYDRATE) [Concomitant]
  8. VITAMIN TAB [Concomitant]
  9. AMINO ACIDS [Concomitant]
  10. CEFOTIAM HYDROCHLORIDE [Concomitant]
  11. MUCOSTA [Concomitant]
  12. PIPERACILLIN SODIUM [Concomitant]
  13. TEMODAL [Suspect]
     Indication: GLIOBLASTOMA MULTIFORME
     Dosage: 150 MG/M2; QD;PO
     Route: 048
     Dates: start: 20060920, end: 20060924

REACTIONS (9)
  - LYMPHOCYTE COUNT DECREASED [None]
  - FUNGAEMIA [None]
  - EATING DISORDER [None]
  - CIRCULATORY COLLAPSE [None]
  - HYPOPHAGIA [None]
  - INTERSTITIAL LUNG DISEASE [None]
  - OPPORTUNISTIC INFECTION [None]
  - DECREASED ACTIVITY [None]
  - DECREASED APPETITE [None]
